FAERS Safety Report 9865700 (Version 2)
Quarter: 2014Q1

REPORT INFORMATION
  Report Type: Spontaneous
  Country: None (occurrence: US)
  Receive Date: 20140203
  Receipt Date: 20140203
  Transmission Date: 20141002
  Serious: No
  Sender: FDA-Public Use
  Company Number: US-ALLERGAN-1306758US

PATIENT
  Age: 69 Year
  Sex: Female

DRUGS (4)
  1. RESTASIS [Suspect]
     Indication: DRY EYE
     Dosage: 2 GTT, SINGLE
     Route: 047
     Dates: start: 20130430, end: 20130430
  2. VALTREX [Concomitant]
     Indication: OPHTHALMIC HERPES ZOSTER
  3. LOTEMAX [Concomitant]
     Indication: PRODUCT USED FOR UNKNOWN INDICATION
  4. OMEGA 3 [Concomitant]
     Indication: SUPPLEMENTATION THERAPY

REACTIONS (5)
  - Eye disorder [Unknown]
  - Eye pain [Unknown]
  - Eye swelling [Unknown]
  - Eye pain [Unknown]
  - Eye irritation [Unknown]
